FAERS Safety Report 6768098-3 (Version None)
Quarter: 2010Q2

REPORT INFORMATION
  Report Type: 
  Country: None (occurrence: None)
  Receive Date: 20100614
  Receipt Date: 20100610
  Transmission Date: 20101027
  Serious: Yes (Death)
  Sender: FDA-Public Use
  Company Number: IT-TEVA-223544ISR

PATIENT
  Sex: Male

DRUGS (3)
  1. VINCRISTINE [Suspect]
     Indication: ACUTE MYELOID LEUKAEMIA
     Route: 042
     Dates: start: 20091107, end: 20091107
  2. CYCLOPHOSPHAMIDE [Suspect]
     Indication: ACUTE MYELOID LEUKAEMIA
     Route: 042
     Dates: start: 20091104, end: 20091106
  3. IDARUBICIN HYDROCHLORIDE [Suspect]
     Indication: ACUTE MYELOID LEUKAEMIA
     Route: 042
     Dates: start: 20091107, end: 20091108

REACTIONS (6)
  - HYPERPYREXIA [None]
  - HYPOTENSION [None]
  - NEUROLOGICAL SYMPTOM [None]
  - PNEUMONITIS [None]
  - RESPIRATORY FAILURE [None]
  - SEPTIC SHOCK [None]
